FAERS Safety Report 4763527-9 (Version None)
Quarter: 2005Q3

REPORT INFORMATION
  Report Type: 
  Country: None (occurrence: None)
  Receive Date: 20050908
  Receipt Date: 20050830
  Transmission Date: 20060218
  Serious: Yes (Hospitalization, Other)
  Sender: FDA-Public Use
  Company Number: BR-JNJFOC-20050900986

PATIENT
  Age: 8 Year
  Sex: Female
  Weight: 27.4 kg

DRUGS (2)
  1. HALDOL [Suspect]
     Indication: ACCIDENTAL EXPOSURE
     Dosage: (50 DROPS)
  2. GARDENAL [Suspect]
     Indication: DRUG USE FOR UNKNOWN INDICATION

REACTIONS (5)
  - ACCIDENTAL OVERDOSE [None]
  - CONFUSIONAL STATE [None]
  - DRUG DISPENSING ERROR [None]
  - EXTRAPYRAMIDAL DISORDER [None]
  - OPISTHOTONUS [None]
